FAERS Safety Report 9328209 (Version 2)
Quarter: 2013Q3

REPORT INFORMATION
  Report Type: Spontaneous
  Country: US (occurrence: US)
  Receive Date: 20130604
  Receipt Date: 20130709
  Transmission Date: 20140515
  Serious: No
  Sender: FDA-Public Use
  Company Number: US-009507513-1306USA001315

PATIENT
  Sex: Male

DRUGS (1)
  1. TINACTIN [Suspect]
     Indication: GOUT
     Dosage: UNK, UNKNOWN
     Route: 061

REACTIONS (5)
  - Blood blister [Not Recovered/Not Resolved]
  - Laceration [Recovering/Resolving]
  - Overdose [Unknown]
  - Off label use [Unknown]
  - Product package associated injury [Unknown]
